FAERS Safety Report 9312770 (Version 1)
Quarter: 2013Q2

REPORT INFORMATION
  Report Type: Spontaneous
  Country: JP (occurrence: JP)
  Receive Date: 20130528
  Receipt Date: 20130528
  Transmission Date: 20140414
  Serious: Yes (Other)
  Sender: FDA-Public Use
  Company Number: JP-OTSUKA-JP-2013-11649

PATIENT
  Age: 81 Year
  Sex: Male

DRUGS (3)
  1. PLETAAL [Suspect]
     Indication: CEREBRAL INFARCTION
     Dosage: UNK
     Route: 048
  2. PLETAAL [Suspect]
     Route: 048
  3. BAYASPIRIN [Concomitant]
     Indication: CEREBRAL INFARCTION
     Route: 048

REACTIONS (5)
  - Feeling abnormal [Unknown]
  - Haematemesis [Unknown]
  - Shock [Unknown]
  - Haemorrhage [Unknown]
  - Anaemia [Unknown]
